FAERS Safety Report 17033405 (Version 4)
Quarter: 2020Q3

REPORT INFORMATION
  Report Type: Spontaneous
  Country: US (occurrence: US)
  Receive Date: 20191114
  Receipt Date: 20200805
  Transmission Date: 20201102
  Serious: No
  Sender: FDA-Public Use
  Company Number: US-SA-2019SA313690

PATIENT

DRUGS (7)
  1. MELOXICAM. [Concomitant]
     Active Substance: MELOXICAM
  2. KETOCONAZOLE. [Concomitant]
     Active Substance: KETOCONAZOLE
  3. AMOXICILLIN TRIHYDRATE;CLAVULANATE POTASSIUM [Concomitant]
     Active Substance: AMOXICILLIN\CLAVULANATE POTASSIUM
  4. CLOBETASOL 0.05% [Concomitant]
     Active Substance: CLOBETASOL
  5. KEVZARA [Suspect]
     Active Substance: SARILUMAB
     Dosage: 200 MG, QOW
     Route: 058
  6. TRETINOIN. [Concomitant]
     Active Substance: TRETINOIN
  7. FLECTOR [DICLOFENAC SODIUM] [Concomitant]
     Active Substance: DICLOFENAC SODIUM

REACTIONS (4)
  - Mass [Not Recovered/Not Resolved]
  - Infection [Unknown]
  - Sinusitis [Recovered/Resolved]
  - Swelling [Not Recovered/Not Resolved]
